FAERS Safety Report 25411798 (Version 1)
Quarter: 2025Q2

REPORT INFORMATION
  Report Type: Spontaneous
  Country: US (occurrence: US)
  Receive Date: 20250609
  Receipt Date: 20250609
  Transmission Date: 20250716
  Serious: No
  Sender: ITALFARMACO SPA
  Company Number: US-ITALFARMACO SPA-2178326

PATIENT
  Age: 22 Year
  Sex: Male
  Weight: 65.08 kg

DRUGS (9)
  1. DUVYZAT [Suspect]
     Active Substance: GIVINOSTAT
     Indication: Duchenne muscular dystrophy
     Dates: start: 20250325
  2. PREDNISONE [Concomitant]
     Active Substance: PREDNISONE
  3. PRILOSEC [Concomitant]
     Active Substance: OMEPRAZOLE MAGNESIUM
  4. CALCIUM\VITAMIN D [Concomitant]
     Active Substance: CALCIUM\VITAMIN D
  5. VITAMIN D3 [Concomitant]
     Active Substance: CHOLECALCIFEROL
  6. NEXLETOL [Concomitant]
     Active Substance: BEMPEDOIC ACID
  7. PROZAC [Concomitant]
     Active Substance: FLUOXETINE HYDROCHLORIDE
  8. SPIRONOLACTONE [Concomitant]
     Active Substance: SPIRONOLACTONE
  9. LISINOPRIL [Concomitant]
     Active Substance: LISINOPRIL

REACTIONS (3)
  - Nausea [Unknown]
  - Platelet count decreased [Unknown]
  - Vomiting [Unknown]
